FAERS Safety Report 7939042-8 (Version None)
Quarter: 2011Q4

REPORT INFORMATION
  Report Type: 
  Country: None (occurrence: None)
  Receive Date: 20111124
  Receipt Date: 20111123
  Transmission Date: 20120403
  Serious: Yes (Hospitalization, Other)
  Sender: FDA-Public Use
  Company Number: US-PFIZER INC-2011286806

PATIENT
  Sex: Female
  Weight: 70.748 kg

DRUGS (3)
  1. CHANTIX [Suspect]
     Indication: SMOKING CESSATION THERAPY
     Dosage: 0.5 MG,DAILY
     Dates: start: 20111101, end: 20111101
  2. RISPERIDONE [Concomitant]
     Indication: SLEEP DISORDER
     Dosage: 3 MG, DAILY
     Route: 048
  3. CHANTIX [Suspect]
     Dosage: UNK
     Route: 048
     Dates: start: 20111101, end: 20111123

REACTIONS (4)
  - DEPRESSED MOOD [None]
  - ABNORMAL BEHAVIOUR [None]
  - SUICIDE ATTEMPT [None]
  - NAUSEA [None]
